FAERS Safety Report 12677434 (Version 1)
Quarter: 2016Q3

REPORT INFORMATION
  Report Type: Report from Study
  Country: BR (occurrence: BR)
  Receive Date: 20160823
  Receipt Date: 20160823
  Transmission Date: 20161109
  Serious: Yes (Other)
  Sender: FDA-Public Use
  Company Number: PHHY2016BR112823

PATIENT
  Sex: Female

DRUGS (2)
  1. GALVUS [Suspect]
     Active Substance: VILDAGLIPTIN
     Indication: DIABETES MELLITUS
     Dosage: 50 MG, BID(ONE TABLET IN THE MORNING AND AONE TABLET AT EVENING)
     Route: 048
  2. METFORMIN [Suspect]
     Active Substance: METFORMIN HYDROCHLORIDE
     Indication: PRODUCT USED FOR UNKNOWN INDICATION
     Dosage: UNK
     Route: 048

REACTIONS (7)
  - Dysentery [Unknown]
  - Weight increased [Unknown]
  - Weight fluctuation [Unknown]
  - Hypoacusis [Unknown]
  - Ear pain [Unknown]
  - Influenza [Recovering/Resolving]
  - Blood glucose increased [Unknown]
